FAERS Safety Report 9341747 (Version 2)
Quarter: 2013Q3

REPORT INFORMATION
  Report Type: Spontaneous
  Country: US (occurrence: None)
  Receive Date: 20130606
  Receipt Date: 20130906
  Transmission Date: 20140515
  Serious: Yes (Hospitalization, Other)
  Sender: FDA-Public Use
  Company Number: 54973 RAE052413EF001

PATIENT
  Age: 2 Year
  Sex: Male

DRUGS (2)
  1. HYLAND^S TEETHING TABLETS [Suspect]
     Indication: PYREXIA
  2. HYLAND^S TEETHING TABLETS [Suspect]
     Indication: TEETHING

REACTIONS (2)
  - Convulsion [None]
  - Febrile convulsion [None]
